FAERS Safety Report 18841128 (Version 1)
Quarter: 2021Q1

REPORT INFORMATION
  Report Type: Spontaneous
  Country: AR (occurrence: AR)
  Receive Date: 20210204
  Receipt Date: 20210204
  Transmission Date: 20210419
  Serious: Yes (Other)
  Sender: FDA-Public Use
  Company Number: AR-AMGEN-ARGSP2021017237

PATIENT
  Age: 63 Year
  Sex: Female

DRUGS (1)
  1. ENBREL [Suspect]
     Active Substance: ETANERCEPT
     Indication: PSORIATIC ARTHROPATHY
     Dosage: 50 MILLIGRAM, QWK
     Route: 065
     Dates: start: 20090408

REACTIONS (5)
  - Upper limb fracture [Unknown]
  - Fall [Unknown]
  - Pain [Unknown]
  - Musculoskeletal stiffness [Unknown]
  - Confusional state [Unknown]

NARRATIVE: CASE EVENT DATE: 20201024
